FAERS Safety Report 5936262-9 (Version None)
Quarter: 2008Q4

REPORT INFORMATION
  Report Type: 
  Country: None (occurrence: None)
  Receive Date: 20081030
  Receipt Date: 20081021
  Transmission Date: 20090506
  Serious: Yes (Other)
  Sender: FDA-Public Use
  Company Number: US-PFIZER INC-2008089628

PATIENT
  Sex: Female
  Weight: 90.7 kg

DRUGS (8)
  1. GLUCOTROL [Suspect]
     Indication: DIABETES MELLITUS
     Dates: start: 20080101, end: 20080101
  2. GLUCOTROL XL [Suspect]
     Indication: DIABETES MELLITUS
  3. VALSARTAN [Concomitant]
  4. NEXIUM [Concomitant]
  5. LIPITOR [Concomitant]
  6. ATENOLOL [Concomitant]
  7. KLOR-CON [Concomitant]
  8. HYDROCHLOROTHIAZIDE [Concomitant]

REACTIONS (5)
  - DIZZINESS [None]
  - DYSSTASIA [None]
  - HYPERHIDROSIS [None]
  - MEDICATION ERROR [None]
  - PYREXIA [None]
